FAERS Safety Report 8267975-4 (Version None)
Quarter: 2012Q2

REPORT INFORMATION
  Report Type: 
  Country: None (occurrence: None)
  Receive Date: 20120409
  Receipt Date: 20120326
  Transmission Date: 20120825
  Serious: Yes (Hospitalization, Other)
  Sender: FDA-Public Use
  Company Number: JP-ABBOTT-11P-087-0882836-00

PATIENT
  Sex: Female
  Weight: 55.3 kg

DRUGS (11)
  1. ISONIAZID [Suspect]
     Indication: PRODUCT USED FOR UNKNOWN INDICATION
  2. AMLODIPINE BESYLATE [Concomitant]
     Indication: HYPERTENSION
     Route: 048
  3. HUMIRA [Suspect]
     Indication: RHEUMATOID ARTHRITIS
     Route: 058
     Dates: start: 20101206, end: 20111212
  4. RIFAMPICIN [Suspect]
     Indication: PRODUCT USED FOR UNKNOWN INDICATION
  5. PYRAZINAMIDE [Suspect]
     Indication: PRODUCT USED FOR UNKNOWN INDICATION
  6. ATORVASTATIN CALCIUM [Concomitant]
     Indication: DYSLIPIDAEMIA
     Route: 048
  7. ATORVASTATIN CALCIUM [Concomitant]
     Indication: PRODUCT USED FOR UNKNOWN INDICATION
     Route: 048
  8. MAKYOYOKUKANTO [Concomitant]
     Indication: RHEUMATOID ARTHRITIS
     Route: 048
     Dates: end: 20110315
  9. ETHAMBUTOL HYDROCHLORIDE [Suspect]
     Indication: PRODUCT USED FOR UNKNOWN INDICATION
  10. KEISHIKAJUTSUBUTO [Concomitant]
     Indication: RHEUMATOID ARTHRITIS
     Route: 048
     Dates: start: 20110315
  11. NITRENDIPINE [Concomitant]
     Indication: HYPERTENSION
     Route: 048

REACTIONS (11)
  - SARCOIDOSIS [None]
  - BLOOD CREATINE INCREASED [None]
  - BLOOD URINE PRESENT [None]
  - LYMPHADENOPATHY [None]
  - TUBULOINTERSTITIAL NEPHRITIS [None]
  - PULMONARY TUBERCULOSIS [None]
  - LYSOZYME INCREASED [None]
  - ANGIOTENSIN CONVERTING ENZYME INCREASED [None]
  - LIVER DISORDER [None]
  - BLOOD CREATININE INCREASED [None]
  - COMPUTERISED TOMOGRAM THORAX ABNORMAL [None]
